FAERS Safety Report 19861039 (Version 1)
Quarter: 2021Q3

REPORT INFORMATION
  Report Type: Spontaneous
  Country: CN (occurrence: CN)
  Receive Date: 20210920
  Receipt Date: 20210920
  Transmission Date: 20211014
  Serious: Yes (Hospitalization, Other)
  Sender: FDA-Public Use
  Company Number: CN-PURDUE-USA-2021-0284654

PATIENT
  Age: 63 Year
  Sex: Female

DRUGS (6)
  1. OXYCODONE HYDROCHLORIDE. [Suspect]
     Active Substance: OXYCODONE HYDROCHLORIDE
     Indication: PAIN
     Dosage: 10 MG, BID
     Route: 048
     Dates: start: 20210802, end: 20210812
  2. IMIPENEM                           /00820501/ [Suspect]
     Active Substance: CILASTATIN SODIUM\IMIPENEM
     Indication: PNEUMONIA
     Dosage: 1 G, Q8H
     Route: 041
     Dates: start: 20210806, end: 20210812
  3. SODIUM CHLORIDE. [Concomitant]
     Active Substance: SODIUM CHLORIDE
     Dosage: 100 ML, Q8H
     Route: 041
     Dates: start: 20210803, end: 20210806
  4. SODIUM CHLORIDE. [Concomitant]
     Active Substance: SODIUM CHLORIDE
     Dosage: 100 ML, Q8H
     Route: 041
     Dates: start: 20210806, end: 20210812
  5. FLUCONAZOLE AND SODIUM CHLORIDE [Suspect]
     Active Substance: FLUCONAZOLE
     Indication: PNEUMONIA
     Dosage: 0.2 G, DAILY
     Route: 041
     Dates: start: 20210805, end: 20210812
  6. CEFOPERAZONE SODIUM AND SULBACTAM SODIUM [Suspect]
     Active Substance: CEFOPERAZONE SODIUM\SULBACTAM SODIUM
     Indication: PNEUMONIA
     Dosage: 3 G, Q8H
     Route: 041
     Dates: start: 20210803, end: 20210806

REACTIONS (2)
  - Hepatic function abnormal [Unknown]
  - Condition aggravated [Unknown]

NARRATIVE: CASE EVENT DATE: 20210809
